FAERS Safety Report 8838256 (Version 5)
Quarter: 2013Q3

REPORT INFORMATION
  Report Type: Report from Study
  Country: JP (occurrence: JP)
  Receive Date: 20121012
  Receipt Date: 20130821
  Transmission Date: 20140515
  Serious: Yes (Other)
  Sender: FDA-Public Use
  Company Number: JP-VERTEX PHARMACEUTICAL INC.-AE-2012-011911

PATIENT
  Age: 64 Year
  Sex: Male

DRUGS (11)
  1. VX-950 (TELAPREVIR) [Suspect]
     Indication: CHRONIC HEPATITIS C
     Dosage: 1500 MG, QD
     Route: 048
     Dates: start: 20120619, end: 20120730
  2. REBETOL [Suspect]
     Indication: CHRONIC HEPATITIS C
     Dosage: 800 MG, QD
     Route: 048
     Dates: start: 20120619, end: 20120703
  3. REBETOL [Suspect]
     Dosage: 600 MG, QD
     Route: 048
     Dates: start: 20120704, end: 20120730
  4. REBETOL [Suspect]
     Dosage: 400 MG, QD
     Route: 048
     Dates: start: 20120801, end: 20120807
  5. PEGINTRON [Suspect]
     Indication: CHRONIC HEPATITIS C
     Dosage: 1.5 ?G/KG,QW
     Route: 058
     Dates: start: 20120619, end: 20120626
  6. PEGINTRON [Suspect]
     Dosage: 80 ?G, QW
     Route: 058
     Dates: start: 20120704, end: 20120719
  7. PEGINTRON [Suspect]
     Dosage: 1.0 ?G/KG, QW
     Route: 058
     Dates: start: 20120725, end: 20120801
  8. BASEN [Concomitant]
     Dosage: 3 DF, QD
     Route: 048
  9. AMARYL [Concomitant]
     Dosage: 1 DF, QD
     Route: 048
  10. NORVASC [Concomitant]
     Dosage: 1 DF, QD
     Route: 048
  11. GLACTIV [Concomitant]
     Dosage: 1 DF, QD
     Route: 048

REACTIONS (5)
  - Malaise [Recovered/Resolved]
  - Decreased appetite [Recovered/Resolved]
  - Toxic skin eruption [Recovered/Resolved]
  - Nausea [Recovered/Resolved]
  - Vomiting [Recovered/Resolved]
